FAERS Safety Report 17614465 (Version 1)
Quarter: 2020Q2

REPORT INFORMATION
  Report Type: Spontaneous
  Country: BR (occurrence: BR)
  Receive Date: 20200402
  Receipt Date: 20200402
  Transmission Date: 20200713
  Serious: Yes (Other)
  Sender: FDA-Public Use
  Company Number: BR-EMD SERONO-9154555

PATIENT
  Age: 64 Year
  Sex: Male
  Weight: 78 kg

DRUGS (1)
  1. METFORMIN [Suspect]
     Active Substance: METFORMIN HYDROCHLORIDE
     Indication: DIABETES MELLITUS
     Dates: end: 2015

REACTIONS (6)
  - Back pain [Unknown]
  - Diarrhoea [Unknown]
  - Bacterial test positive [Unknown]
  - Hypokinesia [Unknown]
  - Urinary incontinence [Unknown]
  - Renal failure [Not Recovered/Not Resolved]
